FAERS Safety Report 5218176-5 (Version None)
Quarter: 2007Q1

REPORT INFORMATION
  Report Type: 
  Country: None (occurrence: None)
  Receive Date: 20070124
  Receipt Date: 20070112
  Transmission Date: 20070707
  Serious: Yes (Hospitalization)
  Sender: FDA-Public Use
  Company Number: US-PFIZER INC-2005158897

PATIENT
  Sex: Male
  Weight: 73.7 kg

DRUGS (7)
  1. SUTENT [Suspect]
     Indication: GASTROINTESTINAL STROMAL TUMOUR
     Route: 048
  2. LISINOPRIL [Concomitant]
     Route: 048
  3. CYANOCOBALAMIN [Concomitant]
     Route: 030
  4. GLYBURIDE [Concomitant]
     Route: 048
  5. ASPIRIN [Concomitant]
     Route: 048
  6. PSYLLIUM HYDROPHILIC MUCILLOID [Concomitant]
     Route: 048
  7. VITAMIN CAP [Concomitant]
     Route: 048

REACTIONS (1)
  - ABDOMINAL ABSCESS [None]
